FAERS Safety Report 15011062 (Version 4)
Quarter: 2018Q3

REPORT INFORMATION
  Report Type: Spontaneous
  Country: JP (occurrence: JP)
  Receive Date: 20180614
  Receipt Date: 20180831
  Transmission Date: 20181010
  Serious: Yes (Hospitalization)
  Sender: FDA-Public Use
  Company Number: PHJP2018JP010251

PATIENT
  Age: 61 Year
  Sex: Female

DRUGS (1)
  1. VEGAMOX OPHTHALMIC SOLUTION 0.5% [Suspect]
     Active Substance: MOXIFLOXACIN HYDROCHLORIDE
     Indication: PREOPERATIVE CARE
     Dosage: 1 GTT, QID
     Route: 047
     Dates: start: 20180427, end: 20180427

REACTIONS (6)
  - Angioedema [Unknown]
  - Conjunctivitis [Unknown]
  - Blepharitis allergic [Recovered/Resolved]
  - Eyelid oedema [Recovered/Resolved]
  - Foreign body sensation in eyes [Unknown]
  - Ocular hyperaemia [Recovered/Resolved]

NARRATIVE: CASE EVENT DATE: 20180427
